FAERS Safety Report 24964715 (Version 1)
Quarter: 2025Q1

REPORT INFORMATION
  Report Type: Spontaneous
  Country: US (occurrence: US)
  Receive Date: 20250213
  Receipt Date: 20250213
  Transmission Date: 20250408
  Serious: Yes (Life-Threatening, Hospitalization, Other)
  Sender: HIKMA
  Company Number: US-MLMSERVICE-20250124-PI373796-00101-1

PATIENT
  Age: 27 Year
  Sex: Female

DRUGS (6)
  1. CISPLATIN [Suspect]
     Active Substance: CISPLATIN
     Indication: Neuroendocrine carcinoma metastatic
     Route: 065
  2. CISPLATIN [Suspect]
     Active Substance: CISPLATIN
     Indication: Gastroenteropancreatic neuroendocrine tumour disease
  3. DURVALUMAB [Suspect]
     Active Substance: DURVALUMAB
     Indication: Neuroendocrine carcinoma metastatic
     Route: 065
  4. DURVALUMAB [Suspect]
     Active Substance: DURVALUMAB
     Indication: Gastroenteropancreatic neuroendocrine tumour disease
  5. ETOPOSIDE [Suspect]
     Active Substance: ETOPOSIDE
     Indication: Neuroendocrine carcinoma metastatic
     Route: 065
  6. ETOPOSIDE [Suspect]
     Active Substance: ETOPOSIDE
     Indication: Gastroenteropancreatic neuroendocrine tumour disease

REACTIONS (6)
  - Ectopic ACTH syndrome [Recovering/Resolving]
  - Tumour lysis syndrome [Unknown]
  - Depression [Unknown]
  - Cognitive disorder [Unknown]
  - Hypocalcaemia [Recovering/Resolving]
  - Thrombocytopenia [Unknown]
